FAERS Safety Report 23023518 (Version 1)
Quarter: 2023Q4

REPORT INFORMATION
  Report Type: Spontaneous
  Country: SE (occurrence: SE)
  Receive Date: 20231003
  Receipt Date: 20231003
  Transmission Date: 20240109
  Serious: Yes (Hospitalization)
  Sender: FDA-Public Use
  Company Number: None

PATIENT
  Age: 48 Year
  Sex: Female

DRUGS (8)
  1. KALYDECO [Suspect]
     Active Substance: IVACAFTOR
     Indication: Cystic fibrosis
     Dosage: 150 MG, QD
     Route: 048
     Dates: start: 20230405
  2. JANUVIA [Concomitant]
     Active Substance: SITAGLIPTIN PHOSPHATE
     Route: 048
  3. BISOLVON [Concomitant]
     Active Substance: BROMHEXINE HYDROCHLORIDE
     Route: 048
  4. PANCRELIPASE [Concomitant]
     Active Substance: PANCRELIPASE
     Route: 048
  5. ALBUTEROL [Concomitant]
     Active Substance: ALBUTEROL
  6. MOXIFLOXACIN 2CARE4 [Concomitant]
     Route: 048
  7. ELIQUIS [Concomitant]
     Active Substance: APIXABAN
     Route: 048
  8. .ALPHA.-TOCOPHEROL ACETATE [Concomitant]
     Active Substance: .ALPHA.-TOCOPHEROL ACETATE
     Route: 048

REACTIONS (2)
  - Bacteraemia [Unknown]
  - Fungal infection [Unknown]

NARRATIVE: CASE EVENT DATE: 20230101
